FAERS Safety Report 7511031-7 (Version None)
Quarter: 2011Q2

REPORT INFORMATION
  Report Type: 
  Country: None (occurrence: None)
  Receive Date: 20110531
  Receipt Date: 20110525
  Transmission Date: 20111010
  Serious: Yes (Hospitalization, Other)
  Sender: FDA-Public Use
  Company Number: US-PFIZER INC-2011059015

PATIENT
  Sex: Female

DRUGS (4)
  1. PROTONIX [Concomitant]
     Indication: GASTROOESOPHAGEAL REFLUX DISEASE
     Dosage: UNK,
     Dates: start: 20050101
  2. TRAZODONE [Concomitant]
     Indication: DEPRESSION
     Dosage: UNK,
     Dates: start: 20060101
  3. CHANTIX [Suspect]
     Indication: SMOKING CESSATION THERAPY
     Dosage: 1 MG, UNK
     Dates: start: 20090323, end: 20090615
  4. TRAZODONE [Concomitant]
     Indication: SLEEP DISORDER

REACTIONS (6)
  - DEPRESSION [None]
  - ANXIETY [None]
  - SUICIDAL IDEATION [None]
  - AGGRESSION [None]
  - MENTAL DISORDER [None]
  - NIGHTMARE [None]
